FAERS Safety Report 7536438-3 (Version None)
Quarter: 2011Q2

REPORT INFORMATION
  Report Type: 
  Country: None (occurrence: None)
  Receive Date: 20110602
  Receipt Date: 20110519
  Transmission Date: 20111010
  Serious: Yes (Death)
  Sender: FDA-Public Use
  Company Number: TPA2011A02264

PATIENT
  Age: 71 Year
  Sex: Male

DRUGS (5)
  1. PLAVIX [Concomitant]
  2. RAMIPRIL [Concomitant]
  3. RILMENIDINE (RILMENIDINE) [Concomitant]
  4. ADENURIC (FEBUXOSTAT) [Suspect]
     Indication: HYPERURICAEMIA
     Dosage: 80 MG (80 MG, 1 IN 1 D) ORAL
     Route: 048
     Dates: start: 20100101, end: 20101001
  5. ATENOLOL [Concomitant]

REACTIONS (1)
  - DEATH [None]
